FAERS Safety Report 21590238 (Version 3)
Quarter: 2022Q4

REPORT INFORMATION
  Report Type: Report from Study
  Country: US (occurrence: US)
  Receive Date: 20221114
  Receipt Date: 20221219
  Transmission Date: 20230113
  Serious: Yes (Other)
  Sender: FDA-Public Use
  Company Number: US-MYLANLABS-2022M1120187

PATIENT
  Sex: Female

DRUGS (1)
  1. EFFEXOR XR [Suspect]
     Active Substance: VENLAFAXINE HYDROCHLORIDE
     Indication: Product used for unknown indication
     Dosage: 150 MILLIGRAM
     Route: 065

REACTIONS (11)
  - Pneumonia [Unknown]
  - Condition aggravated [Unknown]
  - Withdrawal syndrome [Unknown]
  - Illness [Unknown]
  - Electric shock sensation [Unknown]
  - Gait disturbance [Unknown]
  - Visual impairment [Unknown]
  - Vertigo [Unknown]
  - Pain [Unknown]
  - Product dose omission issue [Unknown]
  - Product supply issue [Unknown]
